FAERS Safety Report 8364805-7 (Version None)
Quarter: 2012Q2

REPORT INFORMATION
  Report Type: 
  Country: None (occurrence: None)
  Receive Date: 20120516
  Receipt Date: 20120514
  Transmission Date: 20120825
  Serious: Yes (Other)
  Sender: FDA-Public Use
  Company Number: BR-BAYER-2012-047300

PATIENT
  Age: 26 Year
  Sex: Male
  Weight: 70 kg

DRUGS (3)
  1. PANTOPRAZOLE [Concomitant]
     Indication: GASTRITIS
     Dosage: 20 MG, QD
     Route: 048
     Dates: start: 20090101
  2. AVELOX [Suspect]
     Indication: TONSILLITIS
     Dosage: 1 DF, QD
     Route: 048
     Dates: start: 20120513
  3. DIPYRONE TAB [Concomitant]
     Indication: PYREXIA
     Dosage: 40 GTT, Q4HR
     Route: 048
     Dates: start: 20120513

REACTIONS (1)
  - CHROMATURIA [None]
